FAERS Safety Report 6318321-4 (Version None)
Quarter: 2009Q3

REPORT INFORMATION
  Report Type: 
  Country: None (occurrence: None)
  Receive Date: 20090821
  Receipt Date: 20090812
  Transmission Date: 20100115
  Serious: Yes (Death, Life-Threatening, Hospitalization)
  Sender: FDA-Public Use
  Company Number: US-PFIZER INC-2009247724

PATIENT
  Sex: Male
  Weight: 76.644 kg

DRUGS (8)
  1. SUTENT [Suspect]
     Indication: OESOPHAGEAL CARCINOMA
     Dosage: 37.5 MG, 1X/DAY
     Route: 048
     Dates: start: 20090714, end: 20090727
  2. TAXOL [Suspect]
     Indication: OESOPHAGEAL CARCINOMA
     Dosage: 171 MG, DAYS 1,8,15
     Route: 042
     Dates: start: 20090714, end: 20090727
  3. MEGESTROL ACETATE [Concomitant]
     Dosage: 1 TSP DAILY
  4. GLYBURIDE [Concomitant]
     Dosage: 5 MG, 1X/DAY
  5. REGLAN [Concomitant]
     Dosage: 5 MG, 3X/DAY
  6. MIRALAX [Concomitant]
     Dosage: 17 G, AS NEEDED
  7. GLIBOMET [Concomitant]
     Dosage: 5/500 MG, 2X/DAY
  8. SENOKOT [Concomitant]
     Dosage: 2 TABS

REACTIONS (1)
  - PULMONARY EMBOLISM [None]
